FAERS Safety Report 14008024 (Version 1)
Quarter: 2017Q3

REPORT INFORMATION
  Report Type: Spontaneous
  Country: JP (occurrence: JP)
  Receive Date: 20170925
  Receipt Date: 20170925
  Transmission Date: 20171128
  Serious: Yes (Hospitalization)
  Sender: FDA-Public Use
  Company Number: JP-JNJFOC-20170923767

PATIENT
  Age: 66 Year
  Sex: Female

DRUGS (10)
  1. BI-SIFROL [Concomitant]
     Active Substance: PRAMIPEXOLE
     Route: 065
  2. LIPITOR [Concomitant]
     Active Substance: ATORVASTATIN CALCIUM
     Route: 065
  3. ENDOXAN [Concomitant]
     Active Substance: CYCLOPHOSPHAMIDE
     Route: 065
  4. TRAMAL OD [Suspect]
     Active Substance: TRAMADOL
     Indication: PRODUCT USED FOR UNKNOWN INDICATION
     Route: 048
     Dates: start: 20170826, end: 20170904
  5. NAUZELIN [Concomitant]
     Active Substance: DOMPERIDONE
     Route: 065
  6. PREDONINE [Concomitant]
     Active Substance: PREDNISOLONE
     Route: 065
  7. WYPAX [Concomitant]
     Active Substance: LORAZEPAM
     Route: 065
  8. TRAMAL OD [Suspect]
     Active Substance: TRAMADOL
     Indication: PRODUCT USED FOR UNKNOWN INDICATION
     Route: 048
     Dates: start: 20170313, end: 20170825
  9. REGNITE [Concomitant]
     Active Substance: GABAPENTIN ENACARBIL
     Route: 065
  10. MUCOSTA [Concomitant]
     Active Substance: REBAMIPIDE
     Route: 065

REACTIONS (1)
  - Ileus [Recovered/Resolved]

NARRATIVE: CASE EVENT DATE: 20170826
